FAERS Safety Report 5381494-4 (Version None)
Quarter: 2007Q3

REPORT INFORMATION
  Report Type: 
  Country: None (occurrence: None)
  Receive Date: 20070705
  Receipt Date: 20070705
  Transmission Date: 20080115
  Serious: Yes (Hospitalization)
  Sender: FDA-Public Use
  Company Number: None

PATIENT
  Age: 76 Year
  Sex: Male
  Weight: 68 kg

DRUGS (7)
  1. EXJADE [Suspect]
     Indication: IRON OVERLOAD
     Dosage: NOT INDICATED IN PT CHART PT WAS STARTED ~ 6 WEEKS PTA
  2. AVAPRO [Concomitant]
  3. ATENOLOL [Concomitant]
  4. PRAVACHOL [Concomitant]
  5. FOLIC ACID [Concomitant]
  6. VITAMIN B-12 [Concomitant]
  7. ASPIRIN [Concomitant]

REACTIONS (2)
  - BLOOD CREATININE INCREASED [None]
  - HEPATITIS [None]
